FAERS Safety Report 5482046-8 (Version None)
Quarter: 2007Q4

REPORT INFORMATION
  Report Type: 
  Country: None (occurrence: None)
  Receive Date: 20071004
  Receipt Date: 20070920
  Transmission Date: 20080405
  Serious: Yes (Other)
  Sender: FDA-Public Use
  Company Number: 2007RR-10170

PATIENT
  Age: 9 Year
  Sex: Female
  Weight: 32.7 kg

DRUGS (2)
  1. CODEINE SUL TAB [Suspect]
     Indication: PROCEDURAL PAIN
     Dosage: ORAL
     Route: 048
  2. SYMBICORT [Concomitant]

REACTIONS (3)
  - ANGIOEDEMA [None]
  - RASH [None]
  - TONGUE OEDEMA [None]
